FAERS Safety Report 4813416-6 (Version None)
Quarter: 2005Q4

REPORT INFORMATION
  Report Type: 
  Country: None (occurrence: None)
  Receive Date: 20051026
  Receipt Date: 20051006
  Transmission Date: 20060501
  Serious: Yes (Hospitalization, Other)
  Sender: FDA-Public Use
  Company Number: USA0510110196

PATIENT
  Age: 60 Year
  Sex: Male

DRUGS (1)
  1. HUMALOG [Suspect]
     Indication: DIABETES MELLITUS

REACTIONS (12)
  - BALANCE DISORDER [None]
  - BLOOD GLUCOSE FLUCTUATION [None]
  - CATARACT [None]
  - DEPRESSION [None]
  - FALL [None]
  - FATIGUE [None]
  - HYPOACUSIS [None]
  - IMMOBILE [None]
  - IMPAIRED DRIVING ABILITY [None]
  - MENTAL IMPAIRMENT [None]
  - MYOCARDIAL INFARCTION [None]
  - VISUAL DISTURBANCE [None]
